FAERS Safety Report 17180054 (Version 1)
Quarter: 2019Q4

REPORT INFORMATION
  Report Type: Spontaneous
  Country: US (occurrence: US)
  Receive Date: 20191219
  Receipt Date: 20191219
  Transmission Date: 20200122
  Serious: No
  Sender: FDA-Public Use
  Company Number: US-ARM + HAMMER PREMIER BRANDS OF AMERICA INC.-2078027

PATIENT
  Age: 32 Year
  Sex: Female

DRUGS (3)
  1. TOLNAFTATE. [Suspect]
     Active Substance: TOLNAFTATE
     Indication: TINEA PEDIS
     Route: 003
     Dates: start: 20191020, end: 20191020
  2. PREDNISONE. [Suspect]
     Active Substance: PREDNISONE
  3. KEFLEX [Suspect]
     Active Substance: CEPHALEXIN

REACTIONS (1)
  - Hypersensitivity [Recovering/Resolving]

NARRATIVE: CASE EVENT DATE: 20191020
